FAERS Safety Report 10574430 (Version 1)
Quarter: 2014Q4

REPORT INFORMATION
  Report Type: Spontaneous
  Country: US (occurrence: US)
  Receive Date: 20141110
  Receipt Date: 20141110
  Transmission Date: 20150529
  Serious: Yes (Death, Other)
  Sender: FDA-Public Use
  Company Number: US-MERCK-1411USA003274

PATIENT
  Age: 76 Year
  Sex: Male

DRUGS (1)
  1. JANUVIA [Suspect]
     Active Substance: SITAGLIPTIN PHOSPHATE
     Dosage: UNK
     Route: 048
     Dates: start: 2006

REACTIONS (4)
  - Pancreatic carcinoma metastatic [Fatal]
  - Metastases to abdominal cavity [Fatal]
  - Hepatic cancer metastatic [Fatal]
  - Metastatic lymphoma [Fatal]

NARRATIVE: CASE EVENT DATE: 20101228
